FAERS Safety Report 5316338-X (Version None)
Quarter: 2007Q2

REPORT INFORMATION
  Report Type: 
  Country: None (occurrence: None)
  Receive Date: 20070430
  Receipt Date: 20070418
  Transmission Date: 20071010
  Serious: Yes (Hospitalization)
  Sender: FDA-Public Use
  Company Number: 1-1473471-18/MED-07059

PATIENT
  Age: 60 Year
  Sex: Female
  Weight: 72.1 kg

DRUGS (6)
  1. BACTRIM DS [Suspect]
     Indication: BRONCHITIS
     Dosage: ONE TABLET ON 3/16/2007, ORAL
     Route: 048
     Dates: start: 20070316, end: 20070316
  2. ALBUERTOL NEBULIZER [Concomitant]
  3. ATROVENT [Concomitant]
  4. ADVAIR DISKUS 100/50 [Concomitant]
  5. SINGULAIR [Concomitant]
  6. FLEXERIL [Concomitant]

REACTIONS (19)
  - AGONAL RHYTHM [None]
  - BLISTER [None]
  - BLOOD PH DECREASED [None]
  - BURNING SENSATION [None]
  - CONFUSIONAL STATE [None]
  - CONTUSION [None]
  - DRUG HYPERSENSITIVITY [None]
  - DYSPNOEA [None]
  - FALL [None]
  - LOSS OF CONSCIOUSNESS [None]
  - OEDEMA MOUTH [None]
  - PCO2 INCREASED [None]
  - PO2 INCREASED [None]
  - PRURITUS [None]
  - RESPIRATORY ARREST [None]
  - RETCHING [None]
  - SWOLLEN TONGUE [None]
  - VOMITING [None]
  - WHEEZING [None]
